FAERS Safety Report 18909020 (Version 1)
Quarter: 2021Q1

REPORT INFORMATION
  Report Type: Spontaneous
  Country: US (occurrence: US)
  Receive Date: 20210218
  Receipt Date: 20210218
  Transmission Date: 20210420
  Serious: No
  Sender: FDA-Public Use
  Company Number: US-TEVA-2021-US-1873605

PATIENT
  Age: 38 Year
  Sex: Female

DRUGS (1)
  1. ALBUTEROL. [Suspect]
     Active Substance: ALBUTEROL
     Dosage: FREQUENCY NOT REPORTED
     Route: 065

REACTIONS (4)
  - Vulvovaginal mycotic infection [Not Recovered/Not Resolved]
  - Oral contusion [Unknown]
  - Candida infection [Unknown]
  - Lip swelling [Unknown]
